FAERS Safety Report 14728267 (Version 1)
Quarter: 2018Q2

REPORT INFORMATION
  Report Type: Report from Study
  Country: US (occurrence: US)
  Receive Date: 20180406
  Receipt Date: 20180406
  Transmission Date: 20180711
  Serious: No
  Sender: FDA-Public Use
  Company Number: PHEH2018US013289

PATIENT
  Sex: Female

DRUGS (2)
  1. GILENYA [Suspect]
     Active Substance: FINGOLIMOD HYDROCHLORIDE
     Indication: MULTIPLE SCLEROSIS
     Dosage: 0.5 MG, MEDICATION WAS DAILY AND CHANGES TO EVERY OTHER DAY WHEN COUGH WAS PRESENT
     Route: 048
  2. GILENYA [Suspect]
     Active Substance: FINGOLIMOD HYDROCHLORIDE
     Dosage: 0.5 MG, MEDICATION WAS DAILY AND CHANGES TO EVERY OTHER DAY WHEN COUGH WAS PRESENT
     Route: 048

REACTIONS (2)
  - Thyroid function test abnormal [Unknown]
  - Cough [Not Recovered/Not Resolved]
